FAERS Safety Report 24622367 (Version 1)
Quarter: 2024Q4

REPORT INFORMATION
  Report Type: Spontaneous
  Country: US (occurrence: US)
  Receive Date: 20241115
  Receipt Date: 20241115
  Transmission Date: 20250114
  Serious: Yes (Other)
  Sender: PFIZER
  Company Number: US-PFIZER INC-202400300436

PATIENT
  Age: 76 Year
  Sex: Female
  Weight: 63.9 kg

DRUGS (3)
  1. IBRANCE [Suspect]
     Active Substance: PALBOCICLIB
     Indication: Breast cancer stage IV
     Dosage: 1 TAB PO (PER ORAL) DAILY 1-21 THEN TAKE 7 DAYS OFF
     Route: 048
  2. IBRANCE [Suspect]
     Active Substance: PALBOCICLIB
     Indication: Metastases to bone
  3. LETROZOLE [Concomitant]
     Active Substance: LETROZOLE
     Dosage: UNK, DAILY
     Dates: start: 2017

REACTIONS (3)
  - Myelosuppression [Unknown]
  - Neutrophil count abnormal [Unknown]
  - Osteopenia [Unknown]

NARRATIVE: CASE EVENT DATE: 20230201
